FAERS Safety Report 7237878-2 (Version None)
Quarter: 2011Q1

REPORT INFORMATION
  Report Type: 
  Country: None (occurrence: None)
  Receive Date: 20110121
  Receipt Date: 20101213
  Transmission Date: 20110831
  Serious: Yes (Other)
  Sender: FDA-Public Use
  Company Number: AU-ROCHE-754312

PATIENT
  Age: 25 Year
  Sex: Female

DRUGS (1)
  1. DIAZEPAM [Suspect]
     Route: 065

REACTIONS (1)
  - MENTAL DISORDER [None]
